FAERS Safety Report 12100686 (Version 1)
Quarter: 2016Q1

REPORT INFORMATION
  Report Type: Spontaneous
  Country: US (occurrence: US)
  Receive Date: 20160222
  Receipt Date: 20160222
  Transmission Date: 20160526
  Serious: Yes (Other)
  Sender: FDA-Public Use
  Company Number: US-GLAXOSMITHKLINE-US2016GSK025034

PATIENT
  Age: 78 Year
  Sex: Male

DRUGS (6)
  1. TAXOTERE [Interacting]
     Active Substance: DOCETAXEL
     Dosage: 75 MG/M2, UNK (EVERY 3 WEEKS)
     Route: 065
  2. TAXOTERE [Interacting]
     Active Substance: DOCETAXEL
     Dosage: 30 MG/M2, WE
     Route: 065
  3. LEUPRORELIN [Concomitant]
     Active Substance: LEUPROLIDE ACETATE
     Indication: PROSTATE CANCER
     Dosage: UNK
     Route: 065
  4. CARVEDILOL. [Suspect]
     Active Substance: CARVEDILOL
  5. BICALUTAMIDE. [Interacting]
     Active Substance: BICALUTAMIDE
     Indication: PROSTATE CANCER
  6. DRONEDARONE [Interacting]
     Active Substance: DRONEDARONE

REACTIONS (6)
  - Liver injury [Not Recovered/Not Resolved]
  - Drug level increased [Unknown]
  - Cholangitis sclerosing [Not Recovered/Not Resolved]
  - Inflammation [Unknown]
  - Drug interaction [Unknown]
  - Liver injury [Unknown]
